FAERS Safety Report 25519425 (Version 1)
Quarter: 2025Q3

REPORT INFORMATION
  Report Type: Spontaneous
  Country: US (occurrence: US)
  Receive Date: 20250704
  Receipt Date: 20250704
  Transmission Date: 20251021
  Serious: No
  Sender: VERTEX
  Company Number: US-VERTEX PHARMACEUTICALS-2025-010755

PATIENT
  Sex: Male

DRUGS (2)
  1. JOURNAVX [Suspect]
     Active Substance: SUZETRIGINE
     Indication: Product used for unknown indication
     Dosage: 100 MG IN THE MORNING (50 MG 2 TABLETS LOADING DOSE)
     Route: 048
  2. JOURNAVX [Suspect]
     Active Substance: SUZETRIGINE
     Route: 048

REACTIONS (1)
  - Arrhythmia [Recovered/Resolved]
